FAERS Safety Report 11225572 (Version 1)
Quarter: 2015Q2

REPORT INFORMATION
  Report Type: Spontaneous
  Country: US (occurrence: None)
  Receive Date: 20150626
  Receipt Date: 20150626
  Transmission Date: 20150821
  Serious: No
  Sender: FDA-Public Use
  Company Number: None

PATIENT
  Age: 54 Year
  Sex: Male
  Weight: 113.4 kg

DRUGS (2)
  1. LOSARTAN/HCTZ [Concomitant]
     Active Substance: HYDROCHLOROTHIAZIDE\LOSARTAN
  2. LOSARTAN/HCTZ 100/12.5MG [Suspect]
     Active Substance: HYDROCHLOROTHIAZIDE\LOSARTAN
     Indication: HYPERTENSION
     Route: 048
     Dates: start: 20150507, end: 20150624

REACTIONS (2)
  - Product substitution issue [None]
  - Oropharyngeal pain [None]

NARRATIVE: CASE EVENT DATE: 20150607
